FAERS Safety Report 7154391-1 (Version None)
Quarter: 2010Q4

REPORT INFORMATION
  Report Type: 
  Country: None (occurrence: None)
  Receive Date: 20101213
  Receipt Date: 20101130
  Transmission Date: 20110411
  Serious: Yes (Other)
  Sender: FDA-Public Use
  Company Number: AT-ELI_LILLY_AND_COMPANY-AT201012000309

PATIENT
  Age: 21 Year
  Sex: Male
  Weight: 65 kg

DRUGS (2)
  1. CYMBALTA [Suspect]
     Dosage: 60 MG, DAILY (1/D)
     Dates: start: 20100301, end: 20101018
  2. MIRTEL [Concomitant]
     Dosage: 30 MG, DAILY (1/D)
     Dates: start: 20100301, end: 20101018

REACTIONS (2)
  - ASCITES [None]
  - URINARY RETENTION [None]
